FAERS Safety Report 8553504-4 (Version None)
Quarter: 2012Q3

REPORT INFORMATION
  Report Type: 
  Country: None (occurrence: None)
  Receive Date: 20120731
  Receipt Date: 20120725
  Transmission Date: 20120928
  Serious: Yes (Hospitalization, Other)
  Sender: FDA-Public Use
  Company Number: US-PFIZER INC-2012059112

PATIENT
  Sex: Female
  Weight: 113.38 kg

DRUGS (2)
  1. GABAPENTIN [Suspect]
     Indication: NEUROPATHY PERIPHERAL
     Dosage: 1200 MG, 3X/DAY
     Route: 048
     Dates: start: 20111001, end: 20120223
  2. NEURONTIN [Suspect]
     Indication: NEUROPATHY PERIPHERAL
     Dosage: 800 MG, 4X/DAY
     Route: 048
     Dates: start: 20020901

REACTIONS (6)
  - WEIGHT DECREASED [None]
  - CHOLELITHIASIS [None]
  - MIGRAINE [None]
  - VOMITING [None]
  - MALAISE [None]
  - FALL [None]
